FAERS Safety Report 8360238-8 (Version None)
Quarter: 2012Q2

REPORT INFORMATION
  Report Type: 
  Country: None (occurrence: None)
  Receive Date: 20120515
  Receipt Date: 20110718
  Transmission Date: 20120825
  Serious: Yes (Other)
  Sender: FDA-Public Use
  Company Number: US-ALEXION-A201100739

PATIENT
  Sex: Male

DRUGS (13)
  1. SOLIRIS [Suspect]
     Indication: PAROXYSMAL NOCTURNAL HAEMOGLOBINURIA
     Dosage: 600 MG, QW
     Route: 042
     Dates: start: 20070329, end: 20070101
  2. EXJADE [Concomitant]
     Dosage: 500 MG, BID
  3. MULTI-VITAMIN [Concomitant]
     Dosage: UNK, QD
  4. VIDAZA [Suspect]
     Dosage: UNK
  5. FOLIC ACID [Concomitant]
     Dosage: 2 MG, QD
  6. HYDROCODONE BITARTRATE AND ACETAMINOPHEN [Concomitant]
     Dosage: 10-325 MG, PRN
  7. PROVENTIL [Concomitant]
     Dosage: UNK, PRN
  8. SYNTHROID [Concomitant]
     Dosage: 125 UG, QD
  9. GLUCOPHAGE [Concomitant]
     Dosage: 500 MG, QD
  10. SOLIRIS [Suspect]
     Dosage: 900 MG, Q2W
     Route: 042
     Dates: start: 20070508
  11. ALPRAZOLAM [Concomitant]
     Dosage: 0.5 MG, TID, PRN
  12. KLONOPIN [Concomitant]
     Dosage: 0.5 MG, QD
  13. LOPID [Concomitant]
     Dosage: 600 MG, QD

REACTIONS (2)
  - MYELODYSPLASTIC SYNDROME [None]
  - CONDITION AGGRAVATED [None]
